FAERS Safety Report 8157095 (Version 8)
Quarter: 2016Q3

REPORT INFORMATION
  Report Type: Spontaneous
  Country: US (occurrence: US)
  Receive Date: 20110926
  Receipt Date: 20160930
  Transmission Date: 20161109
  Serious: Yes (Other)
  Sender: FDA-Public Use
  Company Number: US-ASTRAZENECA-2010SE61301

PATIENT
  Age: 22735 Day
  Sex: Male
  Weight: 83.9 kg

DRUGS (24)
  1. MELATONIN [Concomitant]
     Active Substance: MELATONIN
  2. NEXIUM [Suspect]
     Active Substance: ESOMEPRAZOLE MAGNESIUM
     Indication: GASTROOESOPHAGEAL REFLUX DISEASE
     Dosage: TWO TIMES A DAY
     Route: 048
  3. CRESTOR [Suspect]
     Active Substance: ROSUVASTATIN CALCIUM
     Indication: BLOOD CHOLESTEROL ABNORMAL
     Route: 048
     Dates: start: 20160714
  4. XANAX [Concomitant]
     Active Substance: ALPRAZOLAM
     Route: 048
  5. CRESTOR [Suspect]
     Active Substance: ROSUVASTATIN CALCIUM
     Indication: PERIPHERAL VASCULAR DISORDER
     Route: 048
     Dates: start: 2006
  6. NEXIUM [Suspect]
     Active Substance: ESOMEPRAZOLE MAGNESIUM
     Indication: GASTROOESOPHAGEAL REFLUX DISEASE
     Route: 048
     Dates: start: 20151023
  7. LISINOPRIL. [Suspect]
     Active Substance: LISINOPRIL
     Indication: BLOOD PRESSURE ABNORMAL
     Route: 048
     Dates: start: 20150831
  8. CRESTOR [Suspect]
     Active Substance: ROSUVASTATIN CALCIUM
     Indication: BLOOD CHOLESTEROL ABNORMAL
     Route: 048
     Dates: start: 2006
  9. PLAVIX [Concomitant]
     Active Substance: CLOPIDOGREL BISULFATE
     Route: 048
  10. NEXIUM [Suspect]
     Active Substance: ESOMEPRAZOLE MAGNESIUM
     Indication: GASTROOESOPHAGEAL REFLUX DISEASE
     Route: 048
     Dates: start: 2016
  11. LISINOPRIL. [Suspect]
     Active Substance: LISINOPRIL
     Indication: BLOOD PRESSURE ABNORMAL
     Dosage: DOSE AND FREQUENCY UNKNOWN
     Route: 048
  12. PRILOSEC [Suspect]
     Active Substance: OMEPRAZOLE MAGNESIUM
     Indication: GASTROOESOPHAGEAL REFLUX DISEASE
     Route: 048
  13. PRILOSEC OTC [Suspect]
     Active Substance: OMEPRAZOLE MAGNESIUM
     Route: 048
  14. DICYCLOMINE [Concomitant]
     Active Substance: DICYCLOMINE HYDROCHLORIDE
     Indication: ABDOMINAL PAIN UPPER
     Dosage: 40 MG IN THE MORNING AND SOMETIMES 40 MG AT NIGHT
  15. NEXIUM [Suspect]
     Active Substance: ESOMEPRAZOLE MAGNESIUM
     Indication: GASTROOESOPHAGEAL REFLUX DISEASE
     Dosage: DOSE AND FREQUENCY UNKNOWN
     Route: 048
  16. STATIN [Concomitant]
     Active Substance: UNSPECIFIED INGREDIENT
  17. ATENOLOL. [Suspect]
     Active Substance: ATENOLOL
     Indication: CARDIAC DISORDER
     Route: 048
  18. WELLBUTRIN XL [Concomitant]
     Active Substance: BUPROPION HYDROCHLORIDE
     Route: 048
  19. BENTYL [Concomitant]
     Active Substance: DICYCLOMINE HYDROCHLORIDE
     Indication: MUSCLE SPASMS
     Route: 048
  20. NEXIUM [Suspect]
     Active Substance: ESOMEPRAZOLE MAGNESIUM
     Indication: GASTROOESOPHAGEAL REFLUX DISEASE
     Route: 048
     Dates: start: 2001, end: 2016
  21. CRESTOR [Suspect]
     Active Substance: ROSUVASTATIN CALCIUM
     Indication: PERIPHERAL VASCULAR DISORDER
     Route: 048
     Dates: start: 20160714
  22. ANTIHYPERTESIVE [Concomitant]
     Dosage: DAILY
  23. ASA [Concomitant]
     Active Substance: ASPIRIN
  24. CITALOPRAM [Concomitant]
     Active Substance: CITALOPRAM HYDROBROMIDE
     Route: 048

REACTIONS (18)
  - Limb discomfort [Unknown]
  - Diverticulitis [Unknown]
  - Irritable bowel syndrome [Unknown]
  - Blood pressure increased [Unknown]
  - Mental impairment [Unknown]
  - Bursitis [Unknown]
  - Gastrooesophageal reflux disease [Unknown]
  - Myocardial infarction [Unknown]
  - Arteriosclerosis [Not Recovered/Not Resolved]
  - Gastric disorder [Unknown]
  - Intentional product misuse [Unknown]
  - Drug dose omission [Unknown]
  - Cerebrovascular accident [Unknown]
  - Intermittent claudication [Unknown]
  - Weight decreased [Unknown]
  - Peripheral artery stenosis [Unknown]
  - Drug ineffective [Unknown]
  - Nerve injury [Unknown]

NARRATIVE: CASE EVENT DATE: 20160812
